FAERS Safety Report 20668889 (Version 2)
Quarter: 2022Q2

REPORT INFORMATION
  Report Type: Spontaneous
  Country: US (occurrence: US)
  Receive Date: 20220404
  Receipt Date: 20220425
  Transmission Date: 20220721
  Serious: Yes (Other)
  Sender: FDA-Public Use
  Company Number: US-BAYER-2022A048729

PATIENT
  Age: 49 Year
  Sex: Female

DRUGS (1)
  1. MIRENA [Suspect]
     Active Substance: LEVONORGESTREL
     Dosage: 20?G/DAY
     Route: 015
     Dates: start: 20161215

REACTIONS (5)
  - Procedural pain [None]
  - Complication of device removal [None]
  - Device use issue [None]
  - Procedural haemorrhage [None]
  - Post procedural discomfort [None]

NARRATIVE: CASE EVENT DATE: 20220329
